FAERS Safety Report 8371379-3 (Version None)
Quarter: 2012Q2

REPORT INFORMATION
  Report Type: 
  Country: None (occurrence: None)
  Receive Date: 20120518
  Receipt Date: 20120515
  Transmission Date: 20120825
  Serious: Yes (Death)
  Sender: FDA-Public Use
  Company Number: US-CELGENEUS-163-21880-12051939

PATIENT
  Sex: Male

DRUGS (6)
  1. DEXAMETHASONE [Concomitant]
     Dosage: 2 MILLIGRAM
     Route: 048
  2. RENVELA [Concomitant]
     Dosage: 2.4 GRAM
     Route: 065
  3. VELCADE [Concomitant]
     Dosage: 3.5 MILLIGRAM
     Route: 065
  4. EPOGEN [Concomitant]
     Dosage: 10000/ML
     Route: 065
  5. REVLIMID [Suspect]
     Indication: MULTIPLE MYELOMA
     Dosage: 5 MILLIGRAM
     Route: 048
     Dates: start: 20111104, end: 20120101
  6. VITAMIN D [Concomitant]
     Dosage: HIGH POTENCY
     Route: 048

REACTIONS (1)
  - DEATH [None]
